FAERS Safety Report 4352278-0 (Version None)
Quarter: 2004Q2

REPORT INFORMATION
  Report Type: 
  Country: None (occurrence: None)
  Receive Date: 20040416
  Receipt Date: 20030324
  Transmission Date: 20050107
  Serious: Yes (Hospitalization)
  Sender: FDA-Public Use
  Company Number: 2002-BP-06460BP

PATIENT
  Age: 72 Year
  Sex: Male

DRUGS (7)
  1. FLOMAX [Suspect]
     Indication: POLLAKIURIA
     Dosage: 0.4 MG (0.4 MG), PO
     Route: 048
     Dates: start: 20021227
  2. HEPARIN [Concomitant]
  3. COUMADIN [Concomitant]
  4. ZOLOFT [Concomitant]
  5. PRINIVIL [Concomitant]
  6. CLARITIN [Concomitant]
  7. ASPIRIN [Concomitant]

REACTIONS (1)
  - PRIAPISM [None]
